FAERS Safety Report 9783741 (Version 1)
Quarter: 2013Q4

REPORT INFORMATION
  Report Type: Spontaneous
  Country: GB (occurrence: GB)
  Receive Date: 20131226
  Receipt Date: 20131226
  Transmission Date: 20140711
  Serious: Yes (Other)
  Sender: FDA-Public Use
  Company Number: GB-B.I. PHARMACEUTICALS,INC./RIDGEFIELD-2013-BI-42866UK

PATIENT
  Age: 73 Year
  Sex: Female

DRUGS (14)
  1. PRADAXA [Suspect]
     Indication: ATRIAL FIBRILLATION
     Dosage: 300 MG
     Route: 048
     Dates: start: 201308, end: 20131122
  2. ALENDRONIC ACID [Concomitant]
  3. AMITRIPTYLINE [Concomitant]
  4. BISOPROLOL [Concomitant]
  5. CALCICHEW D3 [Concomitant]
  6. DIGOXIN [Concomitant]
     Dates: start: 20131126
  7. FORTISIP [Concomitant]
     Dosage: 600 ML
  8. FUROSEMIDE [Concomitant]
     Route: 048
  9. LANSOPRAZOLE [Concomitant]
     Dates: start: 20131122
  10. LISINOPRIL [Concomitant]
     Route: 048
  11. OMEPRAZOLE [Concomitant]
     Dates: start: 20131122
  12. PREDNISOLONE [Concomitant]
  13. SERETIDE [Concomitant]
  14. SIMVASTATIN [Concomitant]
     Dates: end: 20131122

REACTIONS (2)
  - Liver injury [Not Recovered/Not Resolved]
  - Liver function test abnormal [Not Recovered/Not Resolved]
